FAERS Safety Report 18455584 (Version 2)
Quarter: 2021Q1

REPORT INFORMATION
  Report Type: Spontaneous
  Country: US (occurrence: US)
  Receive Date: 20201102
  Receipt Date: 20210330
  Transmission Date: 20210419
  Serious: Yes (Hospitalization, Other)
  Sender: FDA-Public Use
  Company Number: US-PURDUE-USA-2020-0168588

PATIENT
  Sex: Male

DRUGS (24)
  1. HYDROCODONE BITARTRATE AND ACETAMINOPHEN [Suspect]
     Active Substance: ACETAMINOPHEN\HYDROCODONE BITARTRATE
     Dosage: 7.5 ?500MG
     Route: 048
  2. OXYCODONE HYDROCHLORIDE (SIMILAR TO NDA 22?272) [Suspect]
     Active Substance: OXYCODONE HYDROCHLORIDE
     Indication: NECK PAIN
     Dosage: 15 MG, UNK
     Route: 048
  3. ENDOCET [Suspect]
     Active Substance: ACETAMINOPHEN\OXYCODONE HYDROCHLORIDE
     Indication: NECK PAIN
     Dosage: UNK
     Route: 065
  4. MEPERIDINE                         /00016301/ [Suspect]
     Active Substance: MEPERIDINE
     Indication: NECK PAIN
     Dosage: UNK
     Route: 065
  5. OXYCONTIN [Suspect]
     Active Substance: OXYCODONE HYDROCHLORIDE
     Dosage: 80 MG, DAILY
     Route: 048
  6. OXYCONTIN [Suspect]
     Active Substance: OXYCODONE HYDROCHLORIDE
     Dosage: 120 MG, DAILY
     Route: 048
  7. OXYCONTIN [Suspect]
     Active Substance: OXYCODONE HYDROCHLORIDE
     Dosage: 160 MG, Q12H
     Route: 048
     Dates: start: 20030122
  8. HYDROMORPHONE HCL (SIMILAR TO 19?892) [Suspect]
     Active Substance: HYDROMORPHONE HYDROCHLORIDE
     Indication: NECK PAIN
     Dosage: UNK, DAILY
     Route: 048
  9. PALLADONE [Suspect]
     Active Substance: HYDROMORPHONE HYDROCHLORIDE
     Indication: NECK PAIN
     Dosage: UNK
     Route: 048
  10. METHADONE [Suspect]
     Active Substance: METHADONE HYDROCHLORIDE
     Indication: NECK PAIN
     Dosage: UNK
     Route: 065
  11. HYDROCODONE BITARTRATE AND ACETAMINOPHEN [Suspect]
     Active Substance: ACETAMINOPHEN\HYDROCODONE BITARTRATE
     Indication: NECK PAIN
     Dosage: 10?325 MG
     Route: 048
  12. PERCOCET                           /00446701/ [Suspect]
     Active Substance: ACETAMINOPHEN\OXYCODONE HYDROCHLORIDE\OXYCODONE TEREPHTHALATE
     Indication: NECK PAIN
     Dosage: 10?325 MG, 6?7 PERCOCET
     Route: 065
     Dates: start: 20020823
  13. DURAGESIC [Suspect]
     Active Substance: FENTANYL
     Indication: PRODUCT USED FOR UNKNOWN INDICATION
     Dosage: UNK
     Route: 065
  14. OXYCONTIN [Suspect]
     Active Substance: OXYCODONE HYDROCHLORIDE
     Indication: NECK PAIN
     Dosage: 30 MG, DAILY
     Route: 048
     Dates: start: 2001
  15. DILAUDID [Suspect]
     Active Substance: HYDROMORPHONE HYDROCHLORIDE
     Indication: NECK PAIN
     Dosage: UNK
     Route: 048
  16. MORPHINE SULFATE (SIMILAR TO NDA 19?516) [Suspect]
     Active Substance: MORPHINE SULFATE
     Indication: NECK PAIN
     Dosage: UNK
     Route: 048
  17. AVINZA [Suspect]
     Active Substance: MORPHINE SULFATE
     Indication: NECK PAIN
     Dosage: UNK
     Route: 065
  18. OXYCONTIN [Suspect]
     Active Substance: OXYCODONE HYDROCHLORIDE
     Dosage: 40 MG, Q12H
     Route: 048
     Dates: start: 2002
  19. OXYCODONE HCL CR TABLETS (SIMILAR TO NDA 22?272) [Suspect]
     Active Substance: OXYCODONE HYDROCHLORIDE
     Indication: NECK PAIN
     Dosage: 80 MG, UNK
     Route: 048
  20. OXYCODONE/ ACETAMINOPHEN TABLETS [Suspect]
     Active Substance: ACETAMINOPHEN\OXYCODONE HYDROCHLORIDE
     Indication: NECK PAIN
     Dosage: 5?325 MG
     Route: 048
  21. OPANA [Suspect]
     Active Substance: OXYMORPHONE HYDROCHLORIDE
     Indication: NECK PAIN
     Dosage: UNK
     Route: 065
  22. METHADOSE [Suspect]
     Active Substance: METHADONE HYDROCHLORIDE
     Indication: PRODUCT USED FOR UNKNOWN INDICATION
     Dosage: UNK
     Route: 065
  23. HYDROMORPHONE TABLETS [Suspect]
     Active Substance: HYDROMORPHONE
     Indication: NECK PAIN
     Dosage: UNK
     Route: 048
  24. VICODIN [Suspect]
     Active Substance: ACETAMINOPHEN\HYDROCODONE BITARTRATE
     Indication: NECK PAIN
     Dosage: 5?500 MG
     Route: 048

REACTIONS (20)
  - Tooth loss [Unknown]
  - Testicular pain [Unknown]
  - Loss of consciousness [Unknown]
  - Major depression [Unknown]
  - Dental caries [Unknown]
  - Libido decreased [Unknown]
  - Seizure [Unknown]
  - Testicular failure [Unknown]
  - Drug withdrawal syndrome [Unknown]
  - Coma [Unknown]
  - Oedema [Unknown]
  - Emotional distress [Unknown]
  - Skin hypopigmentation [Unknown]
  - Drug dependence [Unknown]
  - Blood testosterone decreased [Unknown]
  - General physical health deterioration [Unknown]
  - Drug tolerance [Unknown]
  - Overdose [Unknown]
  - Drug abuse [Unknown]
  - Hyperaesthesia [Unknown]
